FAERS Safety Report 18282841 (Version 1)
Quarter: 2020Q3

REPORT INFORMATION
  Report Type: Spontaneous
  Country: US (occurrence: US)
  Receive Date: 20200918
  Receipt Date: 20200918
  Transmission Date: 20201103
  Serious: Yes (Death)
  Sender: FDA-Public Use
  Company Number: None

PATIENT
  Age: 75 Year
  Sex: Male
  Weight: 102 kg

DRUGS (5)
  1. REMDESIVIR. [Suspect]
     Active Substance: REMDESIVIR
     Indication: COVID-19 PNEUMONIA
     Route: 041
     Dates: start: 20200515, end: 20200524
  2. CEFTRIXAONE [Concomitant]
     Dates: start: 20200528, end: 20200528
  3. FUROSEMIDE. [Concomitant]
     Active Substance: FUROSEMIDE
     Dates: start: 20200515, end: 20200528
  4. VANCOMYCIN [Concomitant]
     Active Substance: VANCOMYCIN
     Dates: start: 20200525, end: 20200525
  5. IV CONTRAST [Concomitant]
     Active Substance: UNSPECIFIED INGREDIENT
     Dates: start: 20200528, end: 20200528

REACTIONS (3)
  - Heart rate decreased [None]
  - Blood pressure decreased [None]
  - Hypoxia [None]

NARRATIVE: CASE EVENT DATE: 20200615
